FAERS Safety Report 9084481 (Version 1)
Quarter: 2013Q1

REPORT INFORMATION
  Report Type: Spontaneous
  Country: US (occurrence: US)
  Receive Date: 20130130
  Receipt Date: 20130130
  Transmission Date: 20140127
  Serious: No
  Sender: FDA-Public Use
  Company Number: US-ROXANE LABORATORIES, INC.-2013-RO-00016RO

PATIENT
  Sex: Female

DRUGS (4)
  1. BALSALAZIDE [Suspect]
     Indication: COLITIS ULCERATIVE
     Dosage: 6750 MG
     Route: 048
     Dates: start: 2005
  2. VITAMINS [Concomitant]
  3. ASPIRIN [Concomitant]
  4. LEVOTHYROXINE [Concomitant]
     Indication: HYPOTHYROIDISM

REACTIONS (2)
  - Colitis [Recovered/Resolved]
  - Product quality issue [Recovered/Resolved]
